FAERS Safety Report 9859819 (Version 2)
Quarter: 2014Q2

REPORT INFORMATION
  Report Type: Report from Study
  Country: US (occurrence: US)
  Receive Date: 20140131
  Receipt Date: 20140501
  Transmission Date: 20141212
  Serious: Yes (Life-Threatening, Hospitalization, Disabling)
  Sender: FDA-Public Use
  Company Number: US-ACTELION-A-NJ2014-94244

PATIENT
  Age: 17 Month
  Sex: Male

DRUGS (11)
  1. TRACLEER [Suspect]
     Indication: PULMONARY ARTERIAL HYPERTENSION
     Dosage: UNK
     Route: 048
     Dates: start: 20131018
  2. TRACLEER [Suspect]
     Dosage: 15.63 MG, UNK
     Route: 048
     Dates: start: 20131210
  3. SILDENAFIL [Concomitant]
  4. LASIX [Concomitant]
  5. ALDACTAZIDE [Concomitant]
  6. ALBUTEROL [Concomitant]
  7. PULMICORT [Concomitant]
  8. PULMOZYME [Concomitant]
  9. CETIRIZINE [Concomitant]
  10. DIGOXIN [Concomitant]
  11. PREVACID FDT [Concomitant]

REACTIONS (5)
  - Tracheostomy malfunction [Recovering/Resolving]
  - Gastroenteritis norovirus [Recovering/Resolving]
  - Electrolyte imbalance [Recovering/Resolving]
  - Bronchial secretion retention [Recovering/Resolving]
  - Respiratory distress [Unknown]
